FAERS Safety Report 5531453-3 (Version None)
Quarter: 2007Q4

REPORT INFORMATION
  Report Type: 
  Country: None (occurrence: None)
  Receive Date: 20071128
  Receipt Date: 20071128
  Transmission Date: 20080405
  Serious: Yes (Other)
  Sender: FDA-Public Use
  Company Number: None

PATIENT
  Age: 23 Year
  Sex: Female
  Weight: 63.05 kg

DRUGS (1)
  1. CHANTIX [Suspect]
     Indication: SMOKING CESSATION THERAPY
     Dosage: 1/2 TAB FOR 3 DAYS, 2 X DAILY PO
     Route: 048
     Dates: start: 20071109, end: 20071120

REACTIONS (5)
  - AGGRESSION [None]
  - AGITATION [None]
  - DEPRESSION [None]
  - EMOTIONAL DISORDER [None]
  - HYPOAESTHESIA [None]
